FAERS Safety Report 5364652-4 (Version None)
Quarter: 2007Q2

REPORT INFORMATION
  Report Type: 
  Country: None (occurrence: None)
  Receive Date: 20070621
  Receipt Date: 20070611
  Transmission Date: 20071010
  Serious: Yes (Other)
  Sender: FDA-Public Use
  Company Number: US-JNJFOC-20070602632

PATIENT
  Sex: Female
  Weight: 57.61 kg

DRUGS (13)
  1. REMICADE [Suspect]
     Route: 042
  2. REMICADE [Suspect]
     Indication: PSORIATIC ARTHROPATHY
     Route: 042
  3. SYNTHROID [Concomitant]
  4. LIPITOR [Concomitant]
  5. ZOLOFT [Concomitant]
  6. DIOVAN [Concomitant]
  7. TIAGABINE HCL [Concomitant]
  8. VALIUM [Concomitant]
  9. MIRALAX [Concomitant]
  10. VICODIN [Concomitant]
  11. TOPROL-XL [Concomitant]
  12. OSCAL D [Concomitant]
  13. PROVIGIL [Concomitant]

REACTIONS (1)
  - DIABETES MELLITUS [None]
